FAERS Safety Report 20868698 (Version 1)
Quarter: 2022Q2

REPORT INFORMATION
  Report Type: Spontaneous
  Country: US (occurrence: None)
  Receive Date: 20220524
  Receipt Date: 20220524
  Transmission Date: 20220721
  Serious: Yes (Other)
  Sender: FDA-Public Use
  Company Number: US-Fresenius Kabi-FK202206069

PATIENT
  Age: 63 Year
  Sex: Female

DRUGS (2)
  1. LIDOCAINE [Suspect]
     Active Substance: LIDOCAINE
     Indication: Trigger finger
     Dosage: 2 CM3 OF 1 PERCENT
  2. DEXAMETHASONE [Suspect]
     Active Substance: DEXAMETHASONE
     Indication: Trigger finger
     Dosage: 1 CM3

REACTIONS (2)
  - Tendon rupture [Recovered/Resolved]
  - Drug ineffective [Unknown]
